FAERS Safety Report 7183815-9 (Version None)
Quarter: 2010Q4

REPORT INFORMATION
  Report Type: 
  Country: None (occurrence: None)
  Receive Date: 20101210
  Receipt Date: 20101201
  Transmission Date: 20110411
  Serious: Yes (Other)
  Sender: FDA-Public Use
  Company Number: MSTR-NO-1012S-0387

PATIENT
  Age: 47 Year
  Sex: Male

DRUGS (2)
  1. METASTRON [Suspect]
     Indication: BONE PAIN
     Dosage: 142 MBQ, SINGLE DOSE, I.V.
     Route: 042
     Dates: start: 20101125, end: 20101125
  2. METASTRON [Suspect]
     Indication: METASTATIC PAIN
     Dosage: 142 MBQ, SINGLE DOSE, I.V.
     Route: 042
     Dates: start: 20101125, end: 20101125

REACTIONS (2)
  - MALAISE [None]
  - RASH [None]
